FAERS Safety Report 6551865 (Version 19)
Quarter: 2012Q4

REPORT INFORMATION
  Report Type: 
  Country: US (occurrence: US)
  Receive Date: 20080213
  Receipt Date: 20121203
  Transmission Date: 20130627
  Serious: Yes (Hospitalization, Other)
  Sender: FDA-Public Use
  Company Number: US-ROCHE-521756

PATIENT
  Age: 17 Year
  Sex: Female
  Weight: 47.6 kg

DRUGS (9)
  1. ACCUTANE [Suspect]
     Indication: ACNE
     Route: 048
     Dates: start: 19971103, end: 19971229
  2. ACCUTANE [Suspect]
     Dosage: THE PATIENT WAS PRESCRIBED ACCUTANE 40 MG #30 1 OD WITH FOOD ALONG WITH 10 MG I OD WITH FOOD.
     Route: 048
  3. RETIN-A [Concomitant]
     Indication: ACNE
  4. TETRACYCLIN [Concomitant]
     Indication: ACNE
  5. FAMVIR [Concomitant]
     Indication: ACNE
  6. ACLOVATE [Concomitant]
     Indication: ACNE
  7. BENZAMYCIN [Concomitant]
     Indication: ACNE
  8. RANITIDINE [Concomitant]
     Indication: ACNE
  9. NUTRACORT [Concomitant]
     Indication: ACNE

REACTIONS (24)
  - Crohn^s disease [Unknown]
  - Fistula [Unknown]
  - Ascites [Unknown]
  - Splenomegaly [Unknown]
  - Pleural effusion [Unknown]
  - Serositis [Unknown]
  - Inflammatory bowel disease [Unknown]
  - Colitis ulcerative [Unknown]
  - Colitis [Unknown]
  - Anorectal ulcer [Unknown]
  - Anal stenosis [Unknown]
  - Gastrointestinal disorder [Unknown]
  - Anxiety [Unknown]
  - Depression [Unknown]
  - Anaemia [Unknown]
  - Suicidal ideation [Unknown]
  - Female genital tract fistula [Recovered/Resolved]
  - Anal abscess [Unknown]
  - Anal fistula [Unknown]
  - Colonic fistula [Unknown]
  - Delusion [Unknown]
  - Vision blurred [Unknown]
  - Arthralgia [Unknown]
  - Osteopenia [Unknown]
